FAERS Safety Report 7287660-5 (Version None)
Quarter: 2011Q1

REPORT INFORMATION
  Report Type: 
  Country: None (occurrence: None)
  Receive Date: 20110208
  Receipt Date: 20110208
  Transmission Date: 20110831
  Serious: Yes (Hospitalization)
  Sender: FDA-Public Use
  Company Number: None

PATIENT
  Age: 49 Year
  Sex: Male
  Weight: 120.5 kg

DRUGS (1)
  1. MEXILETINE HYDROCHLORIDE [Suspect]

REACTIONS (2)
  - ASTHENIA [None]
  - DIZZINESS [None]
